FAERS Safety Report 15271596 (Version 1)
Quarter: 2018Q4

REPORT INFORMATION
  Report Type: Spontaneous
  Country: ES (occurrence: ES)
  Receive Date: 20180813
  Receipt Date: 20180813
  Transmission Date: 20190204
  Serious: Yes (Hospitalization, Other)
  Sender: FDA-Public Use
  Company Number: IND-ES-009507513-1808ESP004286

PATIENT
  Age: 72 Year
  Sex: Female

DRUGS (2)
  1. ACOXXEL 30 MG [Suspect]
     Active Substance: ETORICOXIB
     Indication: BACK PAIN
     Dosage: UNK, UNKNOWN
     Route: 065
  2. TERIPARATIDE [Suspect]
     Active Substance: TERIPARATIDE
     Indication: PRODUCT USED FOR UNKNOWN INDICATION
     Dosage: UNK, UNKNOWN
     Route: 065
     Dates: start: 201802

REACTIONS (3)
  - Infection [Unknown]
  - Blood pressure increased [Unknown]
  - Nephrolithiasis [Unknown]
